FAERS Safety Report 4394695-9 (Version None)
Quarter: 2004Q3

REPORT INFORMATION
  Report Type: 
  Country: None (occurrence: None)
  Receive Date: 20040706
  Receipt Date: 20040624
  Transmission Date: 20050211
  Serious: Yes (Hospitalization)
  Sender: FDA-Public Use
  Company Number: HQWYE720528JUN04

PATIENT
  Age: 37 Year
  Sex: Female

DRUGS (2)
  1. EFFEXOR XR [Suspect]
     Dosage: 150 MG 1X PER 1 DAY
     Route: 048
     Dates: start: 20040601, end: 20040601
  2. LORAZEPAM [Concomitant]

REACTIONS (6)
  - ABNORMAL BEHAVIOUR [None]
  - AGGRESSION [None]
  - AMNESIA [None]
  - HALLUCINATION, AUDITORY [None]
  - PERSONALITY CHANGE [None]
  - PHYSICAL ASSAULT [None]
